FAERS Safety Report 8852389 (Version 2)
Quarter: 2013Q2

REPORT INFORMATION
  Report Type: Spontaneous
  Country: US (occurrence: None)
  Receive Date: 20120426
  Receipt Date: 20121031
  Transmission Date: 20140414
  Serious: No
  Sender: FDA-Public Use
  Company Number: PHEH2011US012422

PATIENT
  Age: 63 Year
  Sex: Female
  Weight: 70.7 kg

DRUGS (5)
  1. GILENYA [Suspect]
     Indication: RELAPSING-REMITTING MULTIPLE SCLEROSIS
     Route: 048
     Dates: start: 20111115, end: 20120118
  2. NEXIUM (ESOMEPRAZOLE MAGNESIUM) [Concomitant]
  3. CARISOPRODOL (CARISOPRODOL) [Concomitant]
  4. LORCET (HYDROCODONE BITARTRATE, PARACETAMOL) [Concomitant]
  5. AMBIEN (ZOLPIDEM TARTRATE) [Concomitant]

REACTIONS (5)
  - Abdominal pain [None]
  - Fatigue [None]
  - Diarrhoea [None]
  - Hypertension [None]
  - Asthenia [None]
